FAERS Safety Report 22394945 (Version 1)
Quarter: 2023Q2

REPORT INFORMATION
  Report Type: Spontaneous
  Country: US (occurrence: US)
  Receive Date: 20230601
  Receipt Date: 20230601
  Transmission Date: 20230722
  Serious: No
  Sender: FDA-Public Use
  Company Number: US-APIL-2312596US

PATIENT
  Age: 22 Year
  Sex: Female

DRUGS (1)
  1. VRAYLAR [Suspect]
     Active Substance: CARIPRAZINE
     Indication: Bipolar I disorder
     Dosage: 3 MG, QD
     Route: 048

REACTIONS (3)
  - Eye movement disorder [Unknown]
  - Oculogyric crisis [Unknown]
  - Tardive dyskinesia [Unknown]
